FAERS Safety Report 6679222-5 (Version None)
Quarter: 2010Q2

REPORT INFORMATION
  Report Type: 
  Country: None (occurrence: None)
  Receive Date: 20100409
  Receipt Date: 20100325
  Transmission Date: 20101027
  Serious: Yes (Other)
  Sender: FDA-Public Use
  Company Number: SPI201000094

PATIENT
  Sex: Female

DRUGS (1)
  1. AMITIZA [Suspect]
     Indication: IRRITABLE BOWEL SYNDROME
     Dosage: ORAL
     Route: 048

REACTIONS (3)
  - ANAPHYLACTOID REACTION [None]
  - DYSPNOEA [None]
  - THROAT TIGHTNESS [None]
